FAERS Safety Report 5217595-0 (Version None)
Quarter: 2007Q1

REPORT INFORMATION
  Report Type: 
  Country: None (occurrence: None)
  Receive Date: 20070124
  Receipt Date: 20060420
  Transmission Date: 20070707
  Serious: No
  Sender: FDA-Public Use
  Company Number: US-GLAXOSMITHKLINE-A0602664A

PATIENT
  Age: 61 Year
  Sex: Male

DRUGS (10)
  1. PAXIL CR [Suspect]
     Indication: DRUG USE FOR UNKNOWN INDICATION
     Dosage: 25MG PER DAY
     Route: 048
  2. ACTOS [Concomitant]
  3. GLUCOPHAGE [Concomitant]
  4. BYETTA [Concomitant]
  5. ALLEGRA [Concomitant]
  6. ASPIRIN [Concomitant]
  7. COZAAR [Concomitant]
  8. NASALIDE [Concomitant]
  9. SINGULAIR [Concomitant]
  10. VYTORIN [Concomitant]

REACTIONS (3)
  - GLYCOSYLATED HAEMOGLOBIN INCREASED [None]
  - TINNITUS [None]
  - WEIGHT INCREASED [None]
